FAERS Safety Report 13754115 (Version 2)
Quarter: 2017Q3

REPORT INFORMATION
  Report Type: Spontaneous
  Country: IT (occurrence: IT)
  Receive Date: 20170713
  Receipt Date: 20170727
  Transmission Date: 20171127
  Serious: Yes (Other)
  Sender: FDA-Public Use
  Company Number: IT-ROCHE-1960340

PATIENT
  Age: 94 Year
  Sex: Female
  Weight: 50 kg

DRUGS (8)
  1. RANITIDINE. [Concomitant]
     Active Substance: RANITIDINE
     Route: 042
  2. LANSOPRAZOLE. [Interacting]
     Active Substance: LANSOPRAZOLE
     Indication: GASTROOESOPHAGEAL REFLUX DISEASE
     Dosage: PERIOD : 1 YEAR
     Route: 048
  3. LYSINE ACETYLSALICYLATE [Concomitant]
     Active Substance: ASPIRIN LYSINE
     Indication: ISCHAEMIC CARDIOMYOPATHY
     Route: 065
  4. CEFTRIAXONE. [Suspect]
     Active Substance: CEFTRIAXONE
     Indication: PNEUMONITIS
     Route: 042
     Dates: start: 20170424, end: 20170501
  5. LEVOTHYROXINE. [Concomitant]
     Active Substance: LEVOTHYROXINE
     Indication: HYPOTHYROIDISM
     Route: 065
  6. METHYLPREDNISOLONE. [Concomitant]
     Active Substance: METHYLPREDNISOLONE
     Indication: BRONCHOSTENOSIS
     Route: 042
  7. ISOSORBIDE DINITRATE. [Concomitant]
     Active Substance: ISOSORBIDE DINITRATE
     Indication: ISCHAEMIC CARDIOMYOPATHY
     Route: 065
  8. ARIXTRA [Concomitant]
     Active Substance: FONDAPARINUX SODIUM
     Route: 058

REACTIONS (2)
  - Electrocardiogram QT prolonged [Recovering/Resolving]
  - Drug interaction [Unknown]

NARRATIVE: CASE EVENT DATE: 20170426
